FAERS Safety Report 5216989-7 (Version None)
Quarter: 2007Q1

REPORT INFORMATION
  Report Type: 
  Country: None (occurrence: None)
  Receive Date: 20070119
  Receipt Date: 20070103
  Transmission Date: 20070707
  Serious: Yes (Other)
  Sender: FDA-Public Use
  Company Number: DSA_29202_2007

PATIENT
  Age: 11 Year
  Sex: Female

DRUGS (4)
  1. ENALAPRIL MALEATE [Suspect]
     Indication: PROPHYLAXIS
     Dosage: DF QD PO
     Route: 048
     Dates: start: 20060501
  2. ENALAPRIL MALEATE [Suspect]
     Indication: PROTEINURIA
     Dosage: DF QD PO
     Route: 048
     Dates: start: 20060501
  3. ENALAPRIL MALEATE [Suspect]
     Indication: RENAL DISORDER
     Dosage: DF QD PO
     Route: 048
     Dates: start: 20060501
  4. IRON MEDICINE [Concomitant]

REACTIONS (4)
  - BLOOD IRON DECREASED [None]
  - CONDITION AGGRAVATED [None]
  - HAEMOLYTIC URAEMIC SYNDROME [None]
  - RENAL DISORDER [None]
